FAERS Safety Report 8811435 (Version 1)
Quarter: 2012Q4

REPORT INFORMATION
  Report Type: Spontaneous
  Country: US (occurrence: None)
  Receive Date: 20120925
  Receipt Date: 20120925
  Transmission Date: 20130627
  Serious: Yes (Death)
  Sender: FDA-Public Use
  Company Number: None

PATIENT
  Age: 84 Year
  Sex: Male

DRUGS (1)
  1. DANAZOL [Suspect]
     Indication: THROMBOCYTOPENIA
     Dosage: Danazol daily oral.
     Route: 048
     Dates: start: 20110601, end: 20110611

REACTIONS (6)
  - Insomnia [None]
  - Chromaturia [None]
  - Oedema [None]
  - Ejection fraction decreased [None]
  - Brain natriuretic peptide increased [None]
  - No therapeutic response [None]
